FAERS Safety Report 24903389 (Version 1)
Quarter: 2025Q1

REPORT INFORMATION
  Report Type: Spontaneous
  Country: US (occurrence: US)
  Receive Date: 20250130
  Receipt Date: 20250130
  Transmission Date: 20250408
  Serious: No
  Sender: TEVA
  Company Number: US-TEVA-VS-3286698

PATIENT
  Age: 42 Year
  Sex: Female

DRUGS (1)
  1. AJOVY [Suspect]
     Active Substance: FREMANEZUMAB-VFRM
     Indication: Product used for unknown indication
     Route: 065

REACTIONS (3)
  - Injection site pain [Unknown]
  - Headache [Unknown]
  - Product dose omission issue [Unknown]
